FAERS Safety Report 5056781-X (Version None)
Quarter: 2006Q2

REPORT INFORMATION
  Report Type: 
  Country: None (occurrence: None)
  Receive Date: 20060616
  Receipt Date: 20060505
  Transmission Date: 20061013
  Serious: No
  Sender: FDA-Public Use
  Company Number: 2006US001015

PATIENT
  Age: 64 Year
  Sex: Female

DRUGS (3)
  1. VESICARE [Suspect]
     Indication: URINARY INCONTINENCE
     Dosage: SEE IMAGE
     Route: 048
  2. ESTROTEST (BENZYL ALCOHOL, TESTOSTERONE PHENYLPROPIONATE, ESTRADIOL UN [Concomitant]
  3. THYROID THERAPY [Concomitant]

REACTIONS (2)
  - CONSTIPATION [None]
  - DRUG INEFFECTIVE [None]
